FAERS Safety Report 12658920 (Version 1)
Quarter: 2016Q3

REPORT INFORMATION
  Report Type: Spontaneous
  Country: RO (occurrence: RO)
  Receive Date: 20160817
  Receipt Date: 20160817
  Transmission Date: 20161109
  Serious: Yes (Other)
  Sender: FDA-Public Use
  Company Number: RO-SUN PHARMACEUTICAL INDUSTRIES LTD-2016RR-122210

PATIENT
  Age: 44 Year
  Sex: Male

DRUGS (23)
  1. LEPONEX [Suspect]
     Active Substance: CLOZAPINE
     Indication: SCHIZOPHRENIA
     Dosage: 200 MG, UNK
     Route: 065
  2. OLANZAPINE. [Suspect]
     Active Substance: OLANZAPINE
     Indication: SCHIZOPHRENIA
     Dosage: UNK
     Route: 065
  3. DIAZEPAM. [Suspect]
     Active Substance: DIAZEPAM
     Indication: PRODUCT USED FOR UNKNOWN INDICATION
     Dosage: 10 MG, UNK
     Route: 065
  4. DIAZEPAM. [Suspect]
     Active Substance: DIAZEPAM
     Dosage: 20 MG, DAILY
     Route: 065
     Dates: start: 20150602
  5. AMISULPRIDE [Suspect]
     Active Substance: AMISULPRIDE
     Dosage: 800 MG, DAILY
     Route: 065
  6. FLUPENTHIXOL DECANOATE DEPOT [Suspect]
     Active Substance: FLUPENTIXOL DECANOATE
     Indication: SCHIZOPHRENIA
     Dosage: UNK
     Route: 065
  7. CLOZAPINE. [Suspect]
     Active Substance: CLOZAPINE
     Indication: SCHIZOPHRENIA
     Dosage: 300 MG, DAILY
     Route: 065
  8. ALPRAZOLAM. [Suspect]
     Active Substance: ALPRAZOLAM
     Indication: SCHIZOPHRENIA
     Dosage: UNK
     Route: 065
     Dates: start: 201501
  9. FOLIC ACID. [Concomitant]
     Active Substance: FOLIC ACID
     Indication: THALASSAEMIA BETA
     Dosage: UNK
     Route: 065
  10. CLOZAPINE. [Suspect]
     Active Substance: CLOZAPINE
     Dosage: 150 MG, DAILY
     Route: 065
  11. RISPERIDONE. [Suspect]
     Active Substance: RISPERIDONE
     Indication: SCHIZOPHRENIA
     Dosage: UNK
     Route: 065
  12. LEVOMEPROMAZINE [Suspect]
     Active Substance: LEVOMEPROMAZINE
     Dosage: 50 MG, DAILY
     Route: 065
  13. TRIHEXYPHENIDYL [Suspect]
     Active Substance: TRIHEXYPHENIDYL
     Indication: SCHIZOPHRENIA
     Dosage: 4 MG, DAILY
     Route: 065
  14. CLOZAPINE. [Suspect]
     Active Substance: CLOZAPINE
     Dosage: 500 MG, DAILY
     Route: 065
     Dates: start: 201501
  15. THIOPROPERAZINE [Suspect]
     Active Substance: THIOPROPERAZINE
     Indication: SCHIZOPHRENIA
     Dosage: UNK
     Route: 065
  16. ARIPIPRAZOLE. [Suspect]
     Active Substance: ARIPIPRAZOLE
     Indication: SCHIZOPHRENIA
     Dosage: 30 MG, DAILY
     Route: 065
  17. HALOPERIDOL. [Suspect]
     Active Substance: HALOPERIDOL
     Indication: SCHIZOPHRENIA
     Dosage: 15-20 MG/DAY
     Route: 065
  18. LEPONEX [Suspect]
     Active Substance: CLOZAPINE
     Dosage: 300 MG, DAILY
     Route: 065
     Dates: start: 20150602
  19. AMISULPRIDE [Suspect]
     Active Substance: AMISULPRIDE
     Dosage: UNK
  20. LEVOMEPROMAZINE [Suspect]
     Active Substance: LEVOMEPROMAZINE
     Indication: SCHIZOPHRENIA
     Dosage: UNK
     Route: 065
     Dates: start: 201501
  21. AMISULPRIDE [Suspect]
     Active Substance: AMISULPRIDE
     Dosage: 1000 MG, DAILY
     Route: 065
  22. AMISULPRIDE [Suspect]
     Active Substance: AMISULPRIDE
     Indication: SCHIZOPHRENIA
     Dosage: 500 MG, DAILY
     Route: 065
     Dates: start: 20150602
  23. VALPROIC ACID. [Suspect]
     Active Substance: VALPROIC ACID
     Indication: SCHIZOPHRENIA
     Dosage: 1000 MG, DAILY
     Route: 065

REACTIONS (7)
  - Psychotic disorder [Recovering/Resolving]
  - Loss of consciousness [Recovering/Resolving]
  - Generalised tonic-clonic seizure [Recovering/Resolving]
  - Drug effect incomplete [Unknown]
  - Muscle disorder [Unknown]
  - Scapula fracture [Recovering/Resolving]
  - Confusional state [Recovering/Resolving]
